FAERS Safety Report 9302872 (Version 3)
Quarter: 2013Q2

REPORT INFORMATION
  Report Type: Spontaneous
  Country: DE (occurrence: None)
  Receive Date: 20130516
  Receipt Date: 20130605
  Transmission Date: 20140414
  Serious: Yes (Other)
  Sender: FDA-Public Use
  Company Number: 1305-621

PATIENT
  Sex: 0

DRUGS (1)
  1. EYLEA [Suspect]

REACTIONS (1)
  - Panophthalmitis [None]
